FAERS Safety Report 10361233 (Version 1)
Quarter: 2014Q3

REPORT INFORMATION
  Report Type: Spontaneous
  Country: US (occurrence: None)
  Receive Date: 20140731
  Receipt Date: 20140731
  Transmission Date: 20150326
  Serious: Yes (Hospitalization)
  Sender: FDA-Public Use
  Company Number: FK201402930

PATIENT
  Age: 16 Year
  Sex: Female

DRUGS (1)
  1. PROPOFOL. [Suspect]
     Active Substance: PROPOFOL
     Indication: SEDATION
     Route: 042

REACTIONS (5)
  - Depressed level of consciousness [None]
  - Hyperreflexia [None]
  - Vestibular function test abnormal [None]
  - Lordosis [None]
  - Gaze palsy [None]
